FAERS Safety Report 25350759 (Version 1)
Quarter: 2025Q2

REPORT INFORMATION
  Report Type: Spontaneous
  Country: US (occurrence: US)
  Receive Date: 20250523
  Receipt Date: 20250523
  Transmission Date: 20250716
  Serious: No
  Sender: MERCK SHARP & DOHME LLC
  Company Number: US-009507513-2280311

PATIENT

DRUGS (4)
  1. PEMBROLIZUMAB [Suspect]
     Active Substance: PEMBROLIZUMAB
     Indication: Renal cell carcinoma
  2. LENVATINIB [Suspect]
     Active Substance: LENVATINIB
     Indication: Renal cell carcinoma
     Dosage: 14 MG ONCE DAILY
  3. LENVATINIB [Suspect]
     Active Substance: LENVATINIB
     Indication: Renal cell carcinoma
     Dosage: DECREASED TO 10 MG ONCE DAILY
  4. LENVATINIB [Suspect]
     Active Substance: LENVATINIB
     Indication: Renal cell carcinoma
     Dosage: 14 MG ONCE DAILY
     Dates: start: 20240815, end: 20241209

REACTIONS (3)
  - Rash pruritic [Unknown]
  - Abdominal discomfort [Unknown]
  - Product use issue [Unknown]
